FAERS Safety Report 17374435 (Version 1)
Quarter: 2020Q1

REPORT INFORMATION
  Report Type: Spontaneous
  Country: US (occurrence: US)
  Receive Date: 20200205
  Receipt Date: 20200205
  Transmission Date: 20200409
  Serious: Yes (Hospitalization)
  Sender: FDA-Public Use
  Company Number: US-PFIZER INC-2020047793

PATIENT
  Age: 62 Year
  Sex: Female
  Weight: 46.72 kg

DRUGS (1)
  1. DILANTIN [Suspect]
     Active Substance: PHENYTOIN
     Indication: SEIZURE
     Dosage: 100 MG, 3X/DAY
     Route: 048
     Dates: start: 2010

REACTIONS (3)
  - Seizure [Not Recovered/Not Resolved]
  - General physical health deterioration [Unknown]
  - Intentional product use issue [Unknown]

NARRATIVE: CASE EVENT DATE: 201912
